FAERS Safety Report 13524742 (Version 1)
Quarter: 2017Q2

REPORT INFORMATION
  Report Type: Spontaneous
  Country: US (occurrence: US)
  Receive Date: 20170508
  Receipt Date: 20170508
  Transmission Date: 20170830
  Serious: No
  Sender: FDA-Public Use
  Company Number: US-ROCHE-1126641

PATIENT
  Sex: Female

DRUGS (8)
  1. AREDIA [Concomitant]
     Active Substance: PAMIDRONATE DISODIUM
  2. EPIRUBICIN [Concomitant]
     Active Substance: EPIRUBICIN
  3. AVASTIN [Suspect]
     Active Substance: BEVACIZUMAB
     Indication: BREAST CANCER FEMALE
     Route: 065
  4. AVASTIN [Suspect]
     Active Substance: BEVACIZUMAB
     Indication: HAEMATOLOGICAL MALIGNANCY
  5. XELODA [Concomitant]
     Active Substance: CAPECITABINE
  6. TAXOL [Concomitant]
     Active Substance: PACLITAXEL
  7. CYTOXAN [Concomitant]
     Active Substance: CYCLOPHOSPHAMIDE
  8. ADRIAMYCIN [Concomitant]
     Active Substance: DOXORUBICIN HYDROCHLORIDE

REACTIONS (1)
  - Disease progression [Unknown]
